FAERS Safety Report 10717901 (Version 2)
Quarter: 2015Q1

REPORT INFORMATION
  Report Type: Report from Study
  Country: NL (occurrence: NL)
  Receive Date: 20150116
  Receipt Date: 20150205
  Transmission Date: 20150721
  Serious: Yes (Hospitalization)
  Sender: FDA-Public Use
  Company Number: NL-ABBVIE-15P-114-1332918-00

PATIENT
  Age: 75 Year
  Sex: Female

DRUGS (2)
  1. DUODOPA [Suspect]
     Active Substance: CARBIDOPA\LEVODOPA
     Indication: PARKINSON^S DISEASE
     Dosage: MORNING DOSE 15, CD 3.2 ED 3.0 ND 1.8
     Route: 050
     Dates: start: 20090330
  2. DUODOPA [Suspect]
     Active Substance: CARBIDOPA\LEVODOPA
     Dosage: MORNING DOSE 12, CD 3.2 ED 3.0 ND 1.8
     Route: 050

REACTIONS (6)
  - Dyskinesia [Unknown]
  - On and off phenomenon [Recovered/Resolved]
  - Status asthmaticus [Unknown]
  - Fatigue [Unknown]
  - Dyspnoea [Unknown]
  - Underdose [Recovered/Resolved]

NARRATIVE: CASE EVENT DATE: 20150108
